FAERS Safety Report 5660752-X (Version None)
Quarter: 2008Q1

REPORT INFORMATION
  Report Type: 
  Country: None (occurrence: None)
  Receive Date: 20080311
  Receipt Date: 20080301
  Transmission Date: 20080703
  Serious: Yes (Hospitalization)
  Sender: FDA-Public Use
  Company Number: US-ELI_LILLY_AND_COMPANY-US200709005101

PATIENT
  Sex: Female

DRUGS (5)
  1. BYETTA [Suspect]
     Dosage: 5 UG, 2/D
     Route: 058
     Dates: start: 20070802
  2. BYETTA [Suspect]
     Dosage: 5 UG, 2/D
     Route: 058
  3. METFORMIN HCL [Concomitant]
     Dosage: 850 MG, 3/D
     Route: 048
  4. ACTOS [Concomitant]
     Dosage: 45 MG, DAILY (1/D)
     Route: 048
  5. GLIPIZIDE [Concomitant]
     Dosage: UNK, DAILY (1/D)
     Route: 048

REACTIONS (2)
  - OSTEOMYELITIS [None]
  - PERIPHERAL VASCULAR DISORDER [None]
